FAERS Safety Report 11017046 (Version 2)
Quarter: 2015Q2

REPORT INFORMATION
  Report Type: Spontaneous
  Country: US (occurrence: US)
  Receive Date: 20150412
  Receipt Date: 20150525
  Transmission Date: 20150821
  Serious: No
  Sender: FDA-Public Use
  Company Number: US-JNJFOC-20130415296

PATIENT
  Sex: Female
  Weight: 116.58 kg

DRUGS (3)
  1. SINGULAIR [Concomitant]
     Active Substance: MONTELUKAST SODIUM
     Indication: MULTIPLE ALLERGIES
     Route: 048
  2. ZYRTEC [Concomitant]
     Active Substance: CETIRIZINE HYDROCHLORIDE
     Indication: ASTHMA
     Route: 048
  3. ORTHO EVRA [Suspect]
     Active Substance: ETHINYL ESTRADIOL\NORELGESTROMIN
     Indication: OVARIAN CYST
     Route: 062
     Dates: start: 2000, end: 2003

REACTIONS (3)
  - Product use issue [Unknown]
  - Dermatitis contact [Not Recovered/Not Resolved]
  - Application site discolouration [Recovered/Resolved]

NARRATIVE: CASE EVENT DATE: 2000
